FAERS Safety Report 15238115 (Version 7)
Quarter: 2022Q1

REPORT INFORMATION
  Report Type: Spontaneous
  Country: ES (occurrence: ES)
  Receive Date: 20180803
  Receipt Date: 20220308
  Transmission Date: 20220423
  Serious: Yes (Hospitalization, Other)
  Sender: FDA-Public Use
  Company Number: ES-AUROBINDO-AUR-APL-2018-039058

PATIENT
  Age: 39 Year
  Sex: Male

DRUGS (14)
  1. ASPIRIN [Interacting]
     Active Substance: ASPIRIN
     Indication: Antiplatelet therapy
     Dosage: UNK
     Route: 065
     Dates: start: 2014
  2. BISOPROLOL [Interacting]
     Active Substance: BISOPROLOL
     Indication: Product used for unknown indication
     Dosage: UNK
     Route: 065
     Dates: start: 2014
  3. CLOPIDOGREL [Suspect]
     Active Substance: CLOPIDOGREL BISULFATE
     Indication: Anticoagulant therapy
     Dosage: UNK
     Route: 065
  4. EFAVIRENZ [Interacting]
     Active Substance: EFAVIRENZ
     Indication: HIV infection
     Dosage: UNK
     Route: 048
     Dates: start: 2012
  5. ENALAPRIL [Interacting]
     Active Substance: ENALAPRIL
     Indication: Product used for unknown indication
     Dosage: UNK
     Route: 048
     Dates: start: 2014
  6. PANTOPRAZOLE [Interacting]
     Active Substance: PANTOPRAZOLE
     Indication: Product used for unknown indication
     Dosage: UNK
     Route: 065
     Dates: start: 2014
  7. TENOFOVIR DISOPROXIL [Interacting]
     Active Substance: TENOFOVIR DISOPROXIL
     Indication: HIV infection
     Dosage: UNK
     Route: 065
     Dates: start: 2012
  8. ATORVASTATIN [Interacting]
     Active Substance: ATORVASTATIN
     Indication: Product used for unknown indication
     Dosage: UNK
     Route: 065
     Dates: start: 2014
  9. EMTRICITABINE\TENOFOVIR [Interacting]
     Active Substance: EMTRICITABINE\TENOFOVIR
     Indication: HIV infection
     Dosage: UNK
     Route: 065
     Dates: start: 2012
  10. EMTRICITABINE [Interacting]
     Active Substance: EMTRICITABINE
     Indication: HIV infection
     Dosage: UNK
     Route: 065
     Dates: start: 2012
  11. TICAGRELOR [Interacting]
     Active Substance: TICAGRELOR
     Indication: Acute coronary syndrome
     Dosage: UNK
     Route: 048
     Dates: start: 2014
  12. TICAGRELOR [Interacting]
     Active Substance: TICAGRELOR
     Indication: Antiplatelet therapy
  13. RALTEGRAVIR [Suspect]
     Active Substance: RALTEGRAVIR
     Indication: Product used for unknown indication
     Dosage: UNK
     Route: 065
  14. PRASUGREL [Suspect]
     Active Substance: PRASUGREL
     Indication: Product used for unknown indication
     Dosage: UNK
     Route: 065

REACTIONS (5)
  - Acute coronary syndrome [Recovered/Resolved]
  - Vascular stent thrombosis [Recovered/Resolved]
  - Drug interaction [Unknown]
  - Chest pain [Recovered/Resolved]
  - Acute myocardial infarction [Recovered/Resolved]

NARRATIVE: CASE EVENT DATE: 20140101
